FAERS Safety Report 6072271-X (Version None)
Quarter: 2009Q1

REPORT INFORMATION
  Report Type: 
  Country: None (occurrence: None)
  Receive Date: 20090206
  Receipt Date: 20090206
  Transmission Date: 20090719
  Serious: No
  Sender: FDA-Public Use
  Company Number: None

PATIENT
  Sex: Female
  Weight: 58.9676 kg

DRUGS (1)
  1. LIPITOR [Suspect]
     Indication: ARTERIAL DISORDER
     Dosage: 5MG 1 X DAILY PO
     Route: 048
     Dates: start: 20040501, end: 20081001

REACTIONS (4)
  - ARTHRALGIA [None]
  - BACK PAIN [None]
  - MOBILITY DECREASED [None]
  - PAIN [None]
